FAERS Safety Report 10589457 (Version 1)
Quarter: 2014Q4

REPORT INFORMATION
  Report Type: Spontaneous
  Country: DE (occurrence: DE)
  Receive Date: 20141118
  Receipt Date: 20141118
  Transmission Date: 20150529
  Serious: Yes (Other)
  Sender: FDA-Public Use
  Company Number: DE-AUROBINDO-AUR-APL-2014-12069

PATIENT
  Age: 34 Year
  Sex: Female
  Weight: 63 kg

DRUGS (11)
  1. DORMICUM                           /00634102/ [Concomitant]
     Indication: MIGRAINE
     Dosage: UNK
     Route: 042
     Dates: start: 20140510, end: 20140514
  2. SUMATRIPTAN. [Concomitant]
     Active Substance: SUMATRIPTAN
     Indication: MIGRAINE
     Dosage: 100 MG, DAILY
     Route: 048
     Dates: start: 20140701, end: 20140730
  3. ALLEGRO                            /01623202/ [Concomitant]
     Indication: MIGRAINE
     Dosage: 25 MG, DAILY
     Route: 048
     Dates: start: 20140506, end: 20140527
  4. FOLIO FORTE [Concomitant]
     Active Substance: FOLIC ACID\VITAMINS
     Indication: PROPHYLAXIS OF NEURAL TUBE DEFECT
     Dosage: 0.8 MG, DAILY
     Route: 048
  5. PERFALGAN [Concomitant]
     Active Substance: ACETAMINOPHEN
     Indication: MIGRAINE
     Dosage: UNK
     Route: 042
     Dates: start: 20140510, end: 20140514
  6. NOVALGIN [Concomitant]
     Active Substance: METAMIZOLE SODIUM
     Indication: MIGRAINE
     Dosage: UNK
     Route: 042
     Dates: start: 20140510, end: 20140514
  7. RELPAX [Concomitant]
     Active Substance: ELETRIPTAN HYDROBROMIDE
     Indication: MIGRAINE
     Dosage: 40 MG, DAILY
     Route: 048
     Dates: start: 20140528, end: 20140612
  8. TOPIRAMATE. [Suspect]
     Active Substance: TOPIRAMATE
     Indication: MIGRAINE PROPHYLAXIS
     Dosage: 150 MG, DAILY (DOSAGE BETWEEN 150 MG/D AND 25 MG/D)
     Route: 048
     Dates: start: 20140515, end: 20140905
  9. OMEPRAZOLE. [Concomitant]
     Active Substance: OMEPRAZOLE
     Indication: GASTRITIS PROPHYLAXIS
     Dosage: 20 MG, DAILY (MAYBE LONGER)
     Route: 048
     Dates: start: 20140506, end: 20140818
  10. MAXALT                             /01406501/ [Concomitant]
     Indication: MIGRAINE
     Dosage: 20 MG, DAILY (IF REQUIRED 10 OR 20 MG/D)
     Route: 048
     Dates: start: 20140510, end: 20140703
  11. ASPIRIN. [Concomitant]
     Active Substance: ASPIRIN
     Indication: MIGRAINE
     Dosage: 100 MG, DAILY
     Route: 048
     Dates: start: 20140525, end: 20140525

REACTIONS (2)
  - Exposure during pregnancy [Recovered/Resolved]
  - Abortion missed [Recovered/Resolved]
